FAERS Safety Report 20161876 (Version 1)
Quarter: 2021Q4

REPORT INFORMATION
  Report Type: Spontaneous
  Country: US (occurrence: None)
  Receive Date: 20211208
  Receipt Date: 20211208
  Transmission Date: 20220303
  Serious: Yes (Hospitalization)
  Sender: FDA-Public Use
  Company Number: None

PATIENT
  Sex: Male
  Weight: 82.6 kg

DRUGS (1)
  1. CYTARABINE [Suspect]
     Active Substance: CYTARABINE

REACTIONS (7)
  - Chills [None]
  - Febrile neutropenia [None]
  - Mucosal inflammation [None]
  - Blood culture [None]
  - Alpha haemolytic streptococcal infection [None]
  - Hypervolaemia [None]
  - Acute kidney injury [None]

NARRATIVE: CASE EVENT DATE: 20211115
